FAERS Safety Report 9214214 (Version 4)
Quarter: 2014Q2

REPORT INFORMATION
  Report Type: Spontaneous
  Country: US (occurrence: US)
  Receive Date: 20130405
  Receipt Date: 20140530
  Transmission Date: 20141212
  Serious: Yes (Disabling, Other)
  Sender: FDA-Public Use
  Company Number: US-009507513-1304USA001406

PATIENT
  Sex: Female
  Weight: 65.76 kg

DRUGS (7)
  1. FOSAMAX [Suspect]
     Indication: OSTEOPENIA
     Dosage: 10 MG, QD
     Route: 048
     Dates: start: 20000101, end: 20100301
  2. FOSAMAX [Suspect]
     Dosage: 70 MG, QW
     Route: 048
     Dates: start: 20000101, end: 20100301
  3. ALENDRONATE SODIUM [Suspect]
     Dosage: 10 MG, QD
     Route: 048
     Dates: start: 20030606, end: 20060710
  4. ALENDRONATE SODIUM [Suspect]
     Dosage: 70 MG, QW
     Route: 048
     Dates: start: 20070321, end: 20100319
  5. GABAPENTIN [Concomitant]
     Indication: NEUROPATHY PERIPHERAL
     Dosage: UNK
     Route: 048
     Dates: start: 2000
  6. PREMARIN [Concomitant]
     Indication: HORMONE THERAPY
     Dosage: UNK
     Route: 048
     Dates: start: 2000
  7. PROPRANOLOL HYDROCHLORIDE [Concomitant]
     Indication: HYPERTENSION
     Dosage: UNK
     Route: 048
     Dates: start: 2000

REACTIONS (54)
  - Osteonecrosis of jaw [Not Recovered/Not Resolved]
  - Fall [Unknown]
  - Hysterectomy [Unknown]
  - Tooth extraction [Unknown]
  - Intervertebral disc degeneration [Unknown]
  - Osteoporosis [Unknown]
  - Essential hypertension [Unknown]
  - Shoulder operation [Unknown]
  - Elbow operation [Unknown]
  - Tooth loss [Unknown]
  - Sinus disorder [Unknown]
  - Anxiety [Unknown]
  - Nervousness [Unknown]
  - Choking [Unknown]
  - Oral herpes [Unknown]
  - Tooth disorder [Unknown]
  - Tremor [Unknown]
  - Impaired healing [Unknown]
  - Gingival disorder [Unknown]
  - Abscess [Unknown]
  - Oral disorder [Unknown]
  - Exostosis [Unknown]
  - Oral pain [Unknown]
  - Fistula discharge [Unknown]
  - Oral surgery [Unknown]
  - Fracture [Unknown]
  - Hand fracture [Unknown]
  - Impaired healing [Unknown]
  - Limb injury [Unknown]
  - Finger deformity [Unknown]
  - Limb injury [Unknown]
  - Tooth extraction [Recovering/Resolving]
  - Tooth infection [Recovering/Resolving]
  - Tooth extraction [Recovering/Resolving]
  - Fracture malunion [Unknown]
  - Upper respiratory tract infection [Unknown]
  - Rosacea [Unknown]
  - Temporomandibular joint syndrome [Unknown]
  - Bruxism [Unknown]
  - Pain [Not Recovered/Not Resolved]
  - Hyperkeratosis [Unknown]
  - Hypermetropia [Unknown]
  - Astigmatism [Unknown]
  - Presbyopia [Unknown]
  - Osteoarthritis [Unknown]
  - Osteoarthritis [Unknown]
  - Drug hypersensitivity [Unknown]
  - Headache [Unknown]
  - Diarrhoea [Not Recovered/Not Resolved]
  - Gastrooesophageal reflux disease [Unknown]
  - Osteomyelitis [Not Recovered/Not Resolved]
  - Pain in extremity [Unknown]
  - Neck pain [Unknown]
  - Dysphagia [Unknown]
